FAERS Safety Report 4980403-7 (Version None)
Quarter: 2006Q2

REPORT INFORMATION
  Report Type: 
  Country: None (occurrence: None)
  Receive Date: 20060424
  Receipt Date: 20051213
  Transmission Date: 20061013
  Serious: Yes (Hospitalization)
  Sender: FDA-Public Use
  Company Number: US-GLAXOSMITHKLINE-A0585704A

PATIENT
  Age: 69 Year
  Sex: Female
  Weight: 69.5 kg

DRUGS (6)
  1. LOTRONEX [Suspect]
     Indication: IRRITABLE BOWEL SYNDROME
     Dosage: 1MG TWICE PER DAY
     Route: 048
     Dates: start: 20040201
  2. CRESTOR [Concomitant]
     Dosage: 10MG PER DAY
  3. CYMBALTA [Concomitant]
     Dosage: 60MG PER DAY
  4. DIOVAN [Concomitant]
     Dosage: 160MG PER DAY
  5. NEXIUM [Concomitant]
     Dosage: 40MG PER DAY
  6. ALPHA LIPOIC ACID [Concomitant]

REACTIONS (5)
  - ABDOMINAL PAIN [None]
  - COLITIS ISCHAEMIC [None]
  - DIVERTICULUM [None]
  - INTESTINAL MUCOSAL HYPERTROPHY [None]
  - RECTAL HAEMORRHAGE [None]
